FAERS Safety Report 4927955-0 (Version None)
Quarter: 2006Q1

REPORT INFORMATION
  Report Type: 
  Country: None (occurrence: None)
  Receive Date: 20060228
  Receipt Date: 20060125
  Transmission Date: 20060701
  Serious: Yes (Hospitalization)
  Sender: FDA-Public Use
  Company Number: FR-BRISTOL-MYERS SQUIBB COMPANY-13260146

PATIENT
  Age: 73 Year
  Sex: Male
  Weight: 94 kg

DRUGS (10)
  1. ECAZIDE TABS 50 MG/25 MG [Suspect]
     Dosage: STOPPED 19-DEC-2005, RECHALLENGED 26-DEC-2005 - 28-DEC-2005
     Route: 048
     Dates: end: 20051228
  2. ARACYTINE [Suspect]
     Indication: ACUTE MYELOID LEUKAEMIA
     Dosage: 100 MG/M2 FROM 18-OCT-2005 (D1 TO D7), 50 MG/M2 FROM 29-NOV-2005 (D1 TO D5)
     Dates: start: 20051018, end: 20051203
  3. BELUSTINE [Suspect]
     Indication: ACUTE MYELOID LEUKAEMIA
     Dosage: D1
     Dates: start: 20051018
  4. GRANOCYTE [Suspect]
     Indication: ACUTE MYELOID LEUKAEMIA
     Dates: start: 20051018
  5. LODALES [Suspect]
     Dates: end: 20051219
  6. ZAVEDOS [Suspect]
     Indication: ACUTE MYELOID LEUKAEMIA
     Dosage: 8 MG/M2 FROM 18-OCT-2005 (D1 TO D5), 10 MG/M2 FROM 29-NOV-2005 (D1)
     Dates: start: 20051018, end: 20051129
  7. CHRONADALATE [Concomitant]
     Dates: end: 20051228
  8. CIRKAN [Concomitant]
     Dates: end: 20051219
  9. CERVOXAN [Concomitant]
     Dates: end: 20051219
  10. VFEND [Concomitant]

REACTIONS (2)
  - PNEUMONIA [None]
  - RESPIRATORY DISTRESS [None]
